FAERS Safety Report 7047799-6 (Version None)
Quarter: 2010Q4

REPORT INFORMATION
  Report Type: 
  Country: None (occurrence: None)
  Receive Date: 20101015
  Receipt Date: 20101007
  Transmission Date: 20110411
  Serious: Yes (Death)
  Sender: FDA-Public Use
  Company Number: IT-GENZYME-THYR-1000336

PATIENT
  Sex: Male

DRUGS (7)
  1. THYROGEN [Suspect]
     Indication: DIAGNOSTIC PROCEDURE
     Dosage: 0.9 MG, QD
     Route: 030
     Dates: start: 20070115, end: 20070116
  2. RADIOACTIVE IODINE SOLUTION [Suspect]
     Indication: WHOLE BODY SCAN
     Dosage: UNK
     Dates: start: 20070119, end: 20070119
  3. EUTIROX [Concomitant]
     Indication: PRODUCT USED FOR UNKNOWN INDICATION
     Dosage: 125 MG CPR/QD
     Route: 048
  4. ENAPREN [Concomitant]
     Indication: PRODUCT USED FOR UNKNOWN INDICATION
     Dosage: 20 MG CPR/QD
     Route: 048
  5. CARDURA [Concomitant]
     Indication: PRODUCT USED FOR UNKNOWN INDICATION
     Dosage: 4 MG CPR/QD
     Route: 048
  6. SELES BETA [Concomitant]
     Indication: PRODUCT USED FOR UNKNOWN INDICATION
     Dosage: 12.5 MG CPR/QD
     Route: 048
  7. TRAMADOL HCL [Concomitant]
     Indication: PRODUCT USED FOR UNKNOWN INDICATION
     Dosage: 20 GTT, TID
     Route: 048

REACTIONS (2)
  - CARDIAC ARREST [None]
  - MALIGNANT NEOPLASM PROGRESSION [None]
